FAERS Safety Report 4652833-4 (Version None)
Quarter: 2005Q2

REPORT INFORMATION
  Report Type: 
  Country: None (occurrence: None)
  Receive Date: 20050427
  Receipt Date: 20050413
  Transmission Date: 20051028
  Serious: Yes (Hospitalization)
  Sender: FDA-Public Use
  Company Number: 2005-00631

PATIENT
  Age: 80 Year
  Sex: Male

DRUGS (9)
  1. IMMUCYST (BCG - IT (CONNAUGHT)),AVENTIS PASTEUR LTD.,LOT NOT REP,I6 [Suspect]
     Indication: BLADDER CANCER RECURRENT
     Dosage: (81.0 MG) I.VES., BLADDER
     Route: 043
     Dates: start: 20050104, end: 20050209
  2. NAFTOPIDIL [Concomitant]
  3. CLENBUTEROL HYDROCHLORIDE [Concomitant]
  4. IRSOGLADINE MALEATE [Concomitant]
  5. IMIPRAMINE HCL [Concomitant]
  6. FLAVOXATE HYDROCHLORIDE [Concomitant]
  7. FIPYRIDAMOLE [Concomitant]
  8. TOCOPHEROL CONCENTRATE CAP [Concomitant]
  9. FAMOTIDINE [Concomitant]

REACTIONS (5)
  - EPIDIDYMITIS [None]
  - FALSE POSITIVE TUBERCULOSIS TEST [None]
  - ORCHIDECTOMY [None]
  - PYREXIA [None]
  - SCROTAL SWELLING [None]
